FAERS Safety Report 9181495 (Version 1)
Quarter: 2013Q1

REPORT INFORMATION
  Report Type: Spontaneous
  Country: US (occurrence: None)
  Receive Date: 20130321
  Receipt Date: 20130321
  Transmission Date: 20140127
  Serious: Yes (Hospitalization)
  Sender: FDA-Public Use
  Company Number: None

PATIENT
  Age: 18 Year
  Sex: Male
  Weight: 81.65 kg

DRUGS (1)
  1. RIFAMPICIN [Suspect]
     Dosage: 600MG PO DAILY X 4 MONTHS
     Route: 048
     Dates: start: 20121009

REACTIONS (2)
  - Petechiae [None]
  - Platelet count decreased [None]
